FAERS Safety Report 7383344-3 (Version None)
Quarter: 2011Q1

REPORT INFORMATION
  Report Type: 
  Country: None (occurrence: None)
  Receive Date: 20110325
  Receipt Date: 20110325
  Transmission Date: 20110831
  Serious: Yes (Hospitalization)
  Sender: FDA-Public Use
  Company Number: None

PATIENT
  Age: 66 Year
  Sex: Male
  Weight: 120.6 kg

DRUGS (15)
  1. BEVACIZUMAB [Suspect]
     Indication: NON-SMALL CELL LUNG CANCER
     Dosage: 15MG/MG, IV DAY 1 Q3W
     Route: 042
     Dates: start: 20110302
  2. LEVOTHYROXINE [Concomitant]
  3. DEXAMETHASONE [Concomitant]
  4. DIPHENHYDRAMINE-MAALOX-LIDOCAINE [Concomitant]
  5. OMEPRAZOLE [Concomitant]
  6. TIOTROPIUM INHALER [Concomitant]
  7. DIGOXIN [Concomitant]
  8. BENZONATATE [Concomitant]
  9. GEMCITABINE [Suspect]
     Indication: NON-SMALL CELL LUNG CANCER
     Dosage: 900MG/M2, IV DAYS1+8 Q3W
     Route: 042
     Dates: start: 20110302
  10. PEGFILGRASTIM [Concomitant]
  11. COMBIVENT [Concomitant]
  12. FINASTERIDE [Concomitant]
  13. PROCHLORPERAZINE TAB [Concomitant]
  14. SOTALOL HCL [Concomitant]
  15. DOCETAXEL [Suspect]
     Indication: NON-SMALL CELL LUNG CANCER
     Dosage: 75MG/M2, IV DAY 1 Q3W
     Route: 042
     Dates: start: 20110302

REACTIONS (5)
  - CHRONIC OBSTRUCTIVE PULMONARY DISEASE [None]
  - LUNG INFECTION [None]
  - CONDITION AGGRAVATED [None]
  - PNEUMONIA [None]
  - ATRIAL FIBRILLATION [None]
